FAERS Safety Report 15358812 (Version 1)
Quarter: 2018Q3

REPORT INFORMATION
  Report Type: Spontaneous
  Country: US (occurrence: US)
  Receive Date: 20180906
  Receipt Date: 20180906
  Transmission Date: 20181010
  Serious: Yes (Hospitalization)
  Sender: FDA-Public Use
  Company Number: US-ACTELION-A-NJ2018-178270

PATIENT
  Age: 36 Year
  Sex: Male
  Weight: 68.27 kg

DRUGS (3)
  1. VELETRI [Suspect]
     Active Substance: EPOPROSTENOL
     Indication: PULMONARY HYPERTENSION
     Dosage: 29 NG/KG, PER MIN
     Route: 042
  2. WARFARIN [Concomitant]
     Active Substance: WARFARIN
  3. REVATIO [Concomitant]
     Active Substance: SILDENAFIL CITRATE

REACTIONS (1)
  - Gastrointestinal haemorrhage [Unknown]
